FAERS Safety Report 4862129-3 (Version None)
Quarter: 2005Q4

REPORT INFORMATION
  Report Type: 
  Country: None (occurrence: None)
  Receive Date: 20051221
  Receipt Date: 20051209
  Transmission Date: 20060501
  Serious: Yes (Other)
  Sender: FDA-Public Use
  Company Number: CA-BRISTOL-MYERS SQUIBB COMPANY-13219894

PATIENT
  Age: 83 Year
  Sex: Female

DRUGS (13)
  1. TEQUIN [Suspect]
  2. NORFLOXACIN [Suspect]
  3. ASCORBIC ACID [Concomitant]
  4. CALCIUM CARBONATE [Concomitant]
  5. COLACE [Concomitant]
  6. FERROUS GLUCONATE [Concomitant]
  7. IMIPRAMINE HCL [Concomitant]
  8. LEVOTHYROXINE SODIUM [Concomitant]
  9. LORAZEPAM [Concomitant]
  10. VITAMIN CAP [Concomitant]
  11. RISPERIDONE [Concomitant]
  12. TYLENOL [Concomitant]
  13. ZOPICLONE [Concomitant]

REACTIONS (3)
  - HYPERCALCAEMIA [None]
  - HYPERGLYCAEMIA [None]
  - RENAL IMPAIRMENT [None]
